FAERS Safety Report 7884892-X (Version None)
Quarter: 2011Q4

REPORT INFORMATION
  Report Type: 
  Country: None (occurrence: None)
  Receive Date: 20111102
  Receipt Date: 20111026
  Transmission Date: 20120403
  Serious: No
  Sender: FDA-Public Use
  Company Number: US-MUTUAL PHARMACEUTICAL COMPANY, INC.-CLCY20110149

PATIENT
  Sex: Male
  Weight: 110.32 kg

DRUGS (14)
  1. COLCRYS [Suspect]
     Route: 048
     Dates: start: 20111026
  2. COLCRYS [Suspect]
     Indication: GOUT
     Route: 048
     Dates: start: 20111025, end: 20111025
  3. FUROSEMIDE [Concomitant]
     Indication: PRODUCT USED FOR UNKNOWN INDICATION
     Route: 048
  4. TERAZOSIN HCL [Concomitant]
     Indication: PRODUCT USED FOR UNKNOWN INDICATION
     Route: 048
  5. VITAMIN D [Concomitant]
     Indication: PRODUCT USED FOR UNKNOWN INDICATION
     Route: 048
  6. NIACIN [Concomitant]
     Indication: BLOOD CHOLESTEROL INCREASED
     Route: 048
  7. PREDNISONE [Suspect]
     Indication: ARTHRITIS
     Route: 048
     Dates: start: 20111025, end: 20111025
  8. ROSUVASTATIN [Concomitant]
     Indication: BLOOD CHOLESTEROL INCREASED
     Route: 048
  9. CYANOCOBALAMIN [Concomitant]
     Indication: ANAEMIA
     Route: 048
  10. ASPIRIN [Concomitant]
     Indication: PRODUCT USED FOR UNKNOWN INDICATION
     Route: 048
     Dates: start: 20110901
  11. INSULIN [Concomitant]
     Indication: DIABETES MELLITUS
     Route: 058
  12. AMLODIPINE [Concomitant]
     Indication: HYPERTENSION
     Route: 048
  13. ATENOLOL [Concomitant]
     Indication: HYPERTENSION
     Route: 048
  14. LISINOPRIL [Concomitant]
     Indication: HYPERTENSION
     Route: 048

REACTIONS (2)
  - SWELLING FACE [None]
  - EYELID OEDEMA [None]
